FAERS Safety Report 9513982 (Version 2)
Quarter: 2013Q3

REPORT INFORMATION
  Report Type: Spontaneous
  Country: US (occurrence: US)
  Receive Date: 20130910
  Receipt Date: 20130910
  Transmission Date: 20140515
  Serious: Yes (Other)
  Sender: FDA-Public Use
  Company Number: US-ELI_LILLY_AND_COMPANY-US_010566543

PATIENT
  Age: 42 Year
  Sex: Female
  Weight: 124.9 kg

DRUGS (1)
  1. ZYPREXA [Suspect]
     Indication: SCHIZOPHRENIA
     Dosage: 10 MG, DAILY (1/D)
     Route: 048
     Dates: start: 199912, end: 200007

REACTIONS (5)
  - Cardiac failure congestive [Unknown]
  - Type 2 diabetes mellitus [Unknown]
  - Weight increased [Unknown]
  - Weight decreased [Unknown]
  - Faecaloma [Unknown]
